FAERS Safety Report 5451453-1 (Version None)
Quarter: 2007Q3

REPORT INFORMATION
  Report Type: 
  Country: None (occurrence: None)
  Receive Date: 20070913
  Receipt Date: 20070905
  Transmission Date: 20080115
  Serious: Yes (Hospitalization)
  Sender: FDA-Public Use
  Company Number: FR-ROCHE-507039

PATIENT
  Age: 34 Year
  Sex: Male
  Weight: 73 kg

DRUGS (4)
  1. PEGASYS [Suspect]
     Indication: HEPATITIS C
     Dosage: FORM: INJECTABLE SOLUTION.
     Route: 058
     Dates: start: 20070213, end: 20070730
  2. COPEGUS [Suspect]
     Indication: HEPATITIS C
     Route: 048
     Dates: start: 20070213, end: 20070730
  3. THERALENE [Concomitant]
     Dates: start: 20061201
  4. TERCIAN [Concomitant]
     Dosage: DOSE RPTD AS 25 FOUR TIMES
     Dates: start: 20061201

REACTIONS (3)
  - ARTHROPATHY [None]
  - EXTREMITY NECROSIS [None]
  - PERIPHERAL VASCULAR DISORDER [None]
